FAERS Safety Report 20422623 (Version 2)
Quarter: 2022Q3

REPORT INFORMATION
  Report Type: Report from Study
  Country: US (occurrence: US)
  Receive Date: 20220203
  Receipt Date: 20220811
  Transmission Date: 20221027
  Serious: No
  Sender: FDA-Public Use
  Company Number: US-AURINIA PHARMACEUTICALS INC.-AUR-000837

PATIENT
  Age: 42 Year
  Sex: Female

DRUGS (1)
  1. LUPKYNIS [Suspect]
     Active Substance: VOCLOSPORIN
     Indication: Lupus nephritis
     Dosage: 23.7 MILLIGRAM, BID
     Route: 048
     Dates: start: 20211001

REACTIONS (13)
  - Nausea [Unknown]
  - Pain in extremity [Unknown]
  - Asthenia [Unknown]
  - Hypoaesthesia [Unknown]
  - Rash [Unknown]
  - Weight increased [Unknown]
  - Hypogeusia [Unknown]
  - Oedema peripheral [Unknown]
  - Proteinuria [Unknown]
  - Alopecia [Not Recovered/Not Resolved]
  - Dyspepsia [Unknown]
  - Abdominal pain [Unknown]
  - Glomerular filtration rate decreased [Unknown]

NARRATIVE: CASE EVENT DATE: 20211101
